FAERS Safety Report 21242900 (Version 3)
Quarter: 2022Q3

REPORT INFORMATION
  Report Type: Spontaneous
  Country: US (occurrence: US)
  Receive Date: 20220823
  Receipt Date: 20220920
  Transmission Date: 20221027
  Serious: Yes (Other)
  Sender: FDA-Public Use
  Company Number: US-PFIZER INC-PV202200047948

PATIENT
  Age: 74 Year
  Sex: Female

DRUGS (1)
  1. XELJANZ XR [Suspect]
     Active Substance: TOFACITINIB CITRATE
     Dosage: UNK

REACTIONS (6)
  - Cyanosis [Unknown]
  - Abdominal discomfort [Unknown]
  - Blood pressure abnormal [Unknown]
  - Sensory loss [Not Recovered/Not Resolved]
  - Pain in extremity [Not Recovered/Not Resolved]
  - Therapeutic product effect incomplete [Unknown]
